FAERS Safety Report 9090253 (Version 2)
Quarter: 2013Q1

REPORT INFORMATION
  Report Type: Report from Study
  Country: BR (occurrence: BR)
  Receive Date: 20130201
  Receipt Date: 20130328
  Transmission Date: 20140127
  Serious: Yes (Other)
  Sender: FDA-Public Use
  Company Number: BR-ABBOTT-13P-020-1042852-00

PATIENT
  Age: 39 Year
  Sex: Female
  Weight: 60 kg

DRUGS (4)
  1. HUMIRA [Suspect]
     Indication: RHEUMATOID ARTHRITIS
     Route: 058
     Dates: start: 20100101, end: 20121206
  2. HUMIRA [Suspect]
     Route: 058
     Dates: start: 20120123
  3. ABLOK PLUS [Concomitant]
     Indication: BLOOD PRESSURE
     Route: 048
     Dates: start: 201210
  4. DEFLAZACORT [Concomitant]
     Indication: ARTHRITIS
     Route: 048
     Dates: start: 2008

REACTIONS (4)
  - Peripheral nerve lesion [Recovered/Resolved]
  - Hypoaesthesia [Recovered/Resolved]
  - Unevaluable event [Recovered/Resolved]
  - Arthritis [Unknown]
